FAERS Safety Report 9934216 (Version 1)
Quarter: 2014Q1

REPORT INFORMATION
  Report Type: Spontaneous
  Country: JP (occurrence: JP)
  Receive Date: 20140228
  Receipt Date: 20140228
  Transmission Date: 20141002
  Serious: Yes (Death)
  Sender: FDA-Public Use
  Company Number: PHHY2014JP023753

PATIENT
  Age: 47 Year
  Sex: Male

DRUGS (6)
  1. NILOTINIB [Suspect]
     Indication: BLAST CRISIS IN MYELOGENOUS LEUKAEMIA
     Route: 048
  2. HYDROXYUREA [Suspect]
     Indication: BLAST CRISIS IN MYELOGENOUS LEUKAEMIA
  3. TRIMETOPRIM + SULFAMETOXAZOL [Concomitant]
  4. TAZOBACTAM [Concomitant]
  5. PIPERACILLIN [Concomitant]
  6. VANCOMYCIN [Concomitant]

REACTIONS (3)
  - Pneumonia [Fatal]
  - Haemorrhage [Fatal]
  - Stenotrophomonas infection [Fatal]
